FAERS Safety Report 6056212-7 (Version None)
Quarter: 2009Q1

REPORT INFORMATION
  Report Type: 
  Country: None (occurrence: None)
  Receive Date: 20090129
  Receipt Date: 20090120
  Transmission Date: 20090719
  Serious: Yes (Hospitalization)
  Sender: FDA-Public Use
  Company Number: GB-PFIZER INC-2009159052

PATIENT

DRUGS (3)
  1. SUNITINIB MALATE [Suspect]
     Indication: BREAST CANCER
     Dosage: 37.5 MG, 1X/DAY
     Dates: start: 20080616, end: 20081216
  2. *CAPECITABINE [Suspect]
     Indication: BREAST CANCER
     Dosage: 950 MG, 2X/DAY
     Dates: start: 20080616, end: 20081201
  3. PYRIDOXINE [Concomitant]
     Indication: SKIN REACTION
     Dosage: 50 MG, 3X/DAY
     Dates: start: 20050714

REACTIONS (1)
  - THERMAL BURN [None]
